FAERS Safety Report 17203564 (Version 3)
Quarter: 2020Q4

REPORT INFORMATION
  Report Type: Spontaneous
  Country: US (occurrence: US)
  Receive Date: 20191226
  Receipt Date: 20201216
  Transmission Date: 20210113
  Serious: Yes (Other)
  Sender: FDA-Public Use
  Company Number: US-CATALYST PHARMACEUTICALS, INC-2019CAT00402

PATIENT
  Age: 60 Year
  Sex: Female
  Weight: 55.33 kg

DRUGS (17)
  1. FIRDAPSE [Suspect]
     Active Substance: AMIFAMPRIDINE PHOSPHATE
     Indication: MYASTHENIC SYNDROME
     Dosage: 5 MG, 1X/DAY
     Route: 048
     Dates: start: 201907, end: 2019
  2. ADULT MULTIVITAMIN GUMMIES [Concomitant]
     Dosage: 2 DOSAGE UNITS, 1X/DAY
     Route: 048
  3. LACTOBACILIS 3/ FOS/ PANTETHINE (PROBIOTIC AND ACIDOPHILUS) [Concomitant]
     Dosage: 1 CAPSULE, 1X/DAY
     Route: 048
  4. VITAMIN B COMPLEX (VITAMIN B12) [Concomitant]
     Dosage: 1 CAPSULES, 1X/DAY
     Route: 048
  5. METOPROLOL SUCCINATE. [Concomitant]
     Active Substance: METOPROLOL SUCCINATE
     Dosage: 50 MG, 1X/DAY
     Route: 048
  6. WARFARIN [Concomitant]
     Active Substance: WARFARIN
     Dosage: 10 MG, 1X/DAY WITH EVENING MEAL
     Route: 048
  7. PROTONIX [Concomitant]
     Active Substance: PANTOPRAZOLE SODIUM
     Dosage: 40 MG, 1X/DAY
     Route: 048
  8. OXYGEN. [Concomitant]
     Active Substance: OXYGEN
     Dosage: 2 L, NIGHTLY
  9. FIRDAPSE [Suspect]
     Active Substance: AMIFAMPRIDINE PHOSPHATE
     Dosage: 10 MG, 2X/DAY
     Route: 048
     Dates: start: 20201008
  10. LISINOPRIL. [Concomitant]
     Active Substance: LISINOPRIL
     Dosage: 10 MG, 1X/DAY
     Route: 048
  11. FIRDAPSE [Suspect]
     Active Substance: AMIFAMPRIDINE PHOSPHATE
     Dosage: UNK (TITRATED DOSE UP)
     Route: 048
     Dates: start: 2019, end: 2019
  12. IVIG [Concomitant]
     Active Substance: HUMAN IMMUNOGLOBULIN G
     Route: 042
  13. B-COMPLEX-VITAMIN C-FOLIC ACID [Concomitant]
     Dosage: 1 TABLET, 1X/DAY
     Route: 048
  14. FIRDAPSE [Suspect]
     Active Substance: AMIFAMPRIDINE PHOSPHATE
     Dosage: 20 MG, 3X/DAY
     Route: 048
     Dates: start: 2019, end: 201909
  15. SPIRONOLACTONE. [Concomitant]
     Active Substance: SPIRONOLACTONE
     Dosage: 12.5 MG, 1X/DAY
     Route: 048
  16. OXYGEN. [Concomitant]
     Active Substance: OXYGEN
     Dosage: 3 L, NIGHTLY
  17. VITAMIN D3 (CHOLECALCIFEROL) [Concomitant]
     Dosage: 5000 U, 1X/DAY
     Route: 048

REACTIONS (15)
  - Bundle branch block left [Unknown]
  - Asthenia [Unknown]
  - Supraventricular tachycardia [Unknown]
  - Urinary tract infection [Recovered/Resolved]
  - Myocardial infarction [Unknown]
  - Hypoxia [Unknown]
  - Anxiety [Recovered/Resolved]
  - Cardiac disorder [Unknown]
  - Alopecia [Recovered/Resolved]
  - Microangiopathy [Unknown]
  - Depressed mood [Recovered/Resolved]
  - Delirium [Recovered/Resolved]
  - Feeling abnormal [Recovered/Resolved]
  - Nervousness [Recovered/Resolved]
  - Dehydration [Recovered/Resolved]

NARRATIVE: CASE EVENT DATE: 2019
